FAERS Safety Report 7596777-7 (Version None)
Quarter: 2011Q3

REPORT INFORMATION
  Report Type: 
  Country: None (occurrence: None)
  Receive Date: 20110708
  Receipt Date: 20110706
  Transmission Date: 20111222
  Serious: No
  Sender: FDA-Public Use
  Company Number: US-PFIZER INC-2011151907

PATIENT
  Sex: Female
  Weight: 76.644 kg

DRUGS (2)
  1. LYRICA [Suspect]
     Indication: FIBROMYALGIA
     Dosage: 75 MG, 3X/DAY
     Route: 048
     Dates: start: 20101201
  2. MULTI-VITAMINS [Concomitant]
     Dosage: UNK

REACTIONS (1)
  - CONTUSION [None]
